FAERS Safety Report 9222973 (Version 2)
Quarter: 2013Q2

REPORT INFORMATION
  Report Type: Spontaneous
  Country: BR (occurrence: BR)
  Receive Date: 20130410
  Receipt Date: 20130611
  Transmission Date: 20140414
  Serious: Yes (Death, Hospitalization)
  Sender: FDA-Public Use
  Company Number: BR-ROCHE-1211134

PATIENT
  Age: 69 Year
  Sex: Female

DRUGS (1)
  1. ACTILYSE [Suspect]
     Indication: ISCHAEMIC STROKE
     Route: 042

REACTIONS (4)
  - Brain midline shift [Fatal]
  - Neurological decompensation [Fatal]
  - Femoral artery occlusion [Unknown]
  - Cerebral infarction [Fatal]
